FAERS Safety Report 6335563-2 (Version None)
Quarter: 2009Q3

REPORT INFORMATION
  Report Type: 
  Country: None (occurrence: None)
  Receive Date: 20090831
  Receipt Date: 20090818
  Transmission Date: 20100115
  Serious: Yes (Hospitalization)
  Sender: FDA-Public Use
  Company Number: GB-MYLANLABS-2009S1014714

PATIENT
  Age: 90 Year
  Sex: Female

DRUGS (4)
  1. BENDROFLUMETHIAZIDE [Suspect]
     Indication: HYPERTENSION
  2. TRAMADOL HCL [Suspect]
     Indication: ANALGESIA
  3. WARFARIN SODIUM [Suspect]
     Indication: ATRIAL FIBRILLATION
  4. WARFARIN SODIUM [Suspect]
     Dosage: 5MG EVERY EVENING; PRESCRIBED FOR 3 DAYS

REACTIONS (4)
  - CONSTIPATION [None]
  - DELIRIUM [None]
  - HAEMATOMA [None]
  - HYPONATRAEMIA [None]
